FAERS Safety Report 9772023 (Version 1)
Quarter: 2013Q4

REPORT INFORMATION
  Report Type: Spontaneous
  Country: GB (occurrence: None)
  Receive Date: 20131112
  Receipt Date: 20131112
  Transmission Date: 20140711
  Serious: Yes (Death)
  Sender: FDA-Public Use
  Company Number: AUR-APL-2013-05226

PATIENT
  Age: 62 Year
  Sex: Female

DRUGS (1)
  1. SERTRALINE (SERTRALINE) [Suspect]
     Indication: DEPRESSION
     Route: 048
     Dates: start: 20130329

REACTIONS (3)
  - Completed suicide [None]
  - Drowning [None]
  - Atrial fibrillation [None]
